FAERS Safety Report 5863126-1 (Version None)
Quarter: 2008Q3

REPORT INFORMATION
  Report Type: 
  Country: None (occurrence: None)
  Receive Date: 20080828
  Receipt Date: 20080821
  Transmission Date: 20090109
  Serious: Yes (Other)
  Sender: FDA-Public Use
  Company Number: NL-WYE-H05714208

PATIENT
  Sex: Female

DRUGS (2)
  1. PANTOZOL [Suspect]
     Route: 048
     Dates: start: 20070901
  2. PANTOZOL [Suspect]
     Route: 048
     Dates: start: 20080401

REACTIONS (8)
  - ANAPHYLACTIC REACTION [None]
  - CHEST DISCOMFORT [None]
  - DEFAECATION URGENCY [None]
  - DYSPNOEA [None]
  - EYE ROLLING [None]
  - HYPERHIDROSIS [None]
  - MICTURITION URGENCY [None]
  - NAUSEA [None]
